FAERS Safety Report 12982498 (Version 1)
Quarter: 2016Q4

REPORT INFORMATION
  Report Type: Report from Study
  Country: US (occurrence: US)
  Receive Date: 20161129
  Receipt Date: 20161129
  Transmission Date: 20170207
  Serious: No
  Sender: FDA-Public Use
  Company Number: PHEH2016US030683

PATIENT
  Sex: Male

DRUGS (1)
  1. ENTRESTO [Suspect]
     Active Substance: SACUBITRIL\VALSARTAN
     Indication: CARDIAC DISORDER
     Dosage: 100 MG (49/51), UNK
     Route: 065

REACTIONS (5)
  - Dyspnoea [Unknown]
  - Product use issue [Unknown]
  - Cough [Unknown]
  - Dizziness [Unknown]
  - Confusional state [Unknown]
